FAERS Safety Report 14258281 (Version 1)
Quarter: 2017Q4

REPORT INFORMATION
  Report Type: Spontaneous
  Country: US (occurrence: US)
  Receive Date: 20171206
  Receipt Date: 20171206
  Transmission Date: 20180321
  Serious: No
  Sender: FDA-Public Use
  Company Number: None

PATIENT
  Age: 29 Year
  Sex: Female
  Weight: 63 kg

DRUGS (3)
  1. AREX SINSIN PAS [Suspect]
     Active Substance: CAMPHOR (SYNTHETIC)\LEVOMENTHOL\METHYL SALICYLATE\PEPPERMINT OIL\ZINC OXIDE
     Indication: MYALGIA
     Dosage: QUANTITY:6 PATCH(ES);?
     Route: 062
     Dates: start: 20171104, end: 20171105
  2. BIRTH CONTROL [Concomitant]
     Active Substance: UNSPECIFIED INGREDIENT
  3. MULTIVITAMIN [Concomitant]
     Active Substance: VITAMINS

REACTIONS (5)
  - Application site pain [None]
  - Pain [None]
  - Application site burn [None]
  - Application site erythema [None]
  - Application site scar [None]

NARRATIVE: CASE EVENT DATE: 20171104
